FAERS Safety Report 23962831 (Version 1)
Quarter: 2024Q2

REPORT INFORMATION
  Report Type: Spontaneous
  Country: US (occurrence: US)
  Receive Date: 20240611
  Receipt Date: 20240611
  Transmission Date: 20240716
  Serious: No
  Sender: FDA-Public Use
  Company Number: US-GALDERMA-US2024008340

PATIENT

DRUGS (6)
  1. PROACTIV MD ADAPALENE ACNE TREATMENT [Suspect]
     Active Substance: ADAPALENE
     Indication: Dry skin
     Dosage: 1 DOSAGE FORM, BID
     Route: 061
     Dates: start: 202402, end: 202402
  2. PROACTIV MD ADAPALENE ACNE TREATMENT [Suspect]
     Active Substance: ADAPALENE
     Indication: Rash papular
  3. Proactiv MD Ultra Gentle Cleanser [Concomitant]
     Indication: Dry skin
     Dosage: 1 DOSAGE FORM, BID
     Route: 061
     Dates: start: 202402, end: 202402
  4. Proactiv MD Ultra Gentle Cleanser [Concomitant]
     Indication: Rash papular
  5. COSMETICS [Concomitant]
     Active Substance: COSMETICS
     Indication: Dry skin
     Dosage: 1 DOSAGE FORM, BID
     Route: 061
     Dates: start: 202402, end: 202402
  6. COSMETICS [Concomitant]
     Active Substance: COSMETICS
     Indication: Rash papular

REACTIONS (7)
  - Skin burning sensation [Not Recovered/Not Resolved]
  - Erythema [Not Recovered/Not Resolved]
  - Pain of skin [Not Recovered/Not Resolved]
  - Sunburn [Not Recovered/Not Resolved]
  - Product use in unapproved indication [Recovered/Resolved]
  - Inappropriate schedule of product administration [Recovered/Resolved]
  - Overdose [Recovered/Resolved]

NARRATIVE: CASE EVENT DATE: 20240201
